FAERS Safety Report 5117997-7 (Version None)
Quarter: 2006Q3

REPORT INFORMATION
  Report Type: 
  Country: None (occurrence: None)
  Receive Date: 20060926
  Receipt Date: 20060914
  Transmission Date: 20061208
  Serious: Yes (Hospitalization, Other)
  Sender: FDA-Public Use
  Company Number: 2006080629

PATIENT
  Age: 68 Year
  Sex: Male

DRUGS (4)
  1. LIPITOR [Suspect]
     Indication: HYPERLIPIDAEMIA
     Dosage: 10 MG (1 IN 1 D) ORAL
     Route: 048
     Dates: start: 20060301, end: 20060601
  2. DIAZEPAM [Suspect]
     Indication: INSOMNIA
     Dosage: 5 MG (AS NECESSARY, ORAL)
     Route: 048
     Dates: start: 20010101, end: 20060620
  3. BEPRICOR (BEPRIDIL) [Suspect]
     Indication: ARRHYTHMIA
     Dosage: 100 MG (50 MG, 2 IN 1 D) ORAL
     Route: 048
     Dates: start: 20010101, end: 20060601
  4. DRUG, UNSPECIFIED [Concomitant]

REACTIONS (6)
  - ALVEOLITIS [None]
  - INFLAMMATION [None]
  - INTERSTITIAL LUNG DISEASE [None]
  - LUNG DISORDER [None]
  - PULMONARY FIBROSIS [None]
  - STOMACH DISCOMFORT [None]
